FAERS Safety Report 7370877-9 (Version None)
Quarter: 2011Q1

REPORT INFORMATION
  Report Type: 
  Country: None (occurrence: None)
  Receive Date: 20110324
  Receipt Date: 20110315
  Transmission Date: 20110831
  Serious: No
  Sender: FDA-Public Use
  Company Number: US-BIOGENIDEC-2011BI009889

PATIENT
  Age: 60 Year
  Sex: Female

DRUGS (5)
  1. AVONEX [Concomitant]
     Indication: MULTIPLE SCLEROSIS
     Route: 030
     Dates: start: 20011201
  2. TYSABRI [Suspect]
     Indication: MULTIPLE SCLEROSIS
     Route: 042
     Dates: start: 20110112
  3. TYSABRI [Suspect]
     Route: 042
     Dates: start: 20081001, end: 20100629
  4. TYSABRI [Suspect]
     Route: 042
  5. TYSABRI [Suspect]
     Route: 042
     Dates: start: 20061127, end: 20080807

REACTIONS (2)
  - MENTAL IMPAIRMENT [None]
  - HEADACHE [None]
